FAERS Safety Report 5913593-X (Version None)
Quarter: 2008Q4

REPORT INFORMATION
  Report Type: 
  Country: None (occurrence: None)
  Receive Date: 20081009
  Receipt Date: 20080930
  Transmission Date: 20090506
  Serious: Yes (Hospitalization, Other)
  Sender: FDA-Public Use
  Company Number: ZA-BAYER-200815820GPV

PATIENT
  Age: 32 Year
  Sex: Female

DRUGS (1)
  1. MIRENA [Suspect]
     Indication: CONTRACEPTION
     Dates: start: 20040101, end: 20070913

REACTIONS (5)
  - ECTOPIC PREGNANCY [None]
  - HAEMORRHAGE [None]
  - IUD MIGRATION [None]
  - OVARIAN CYST [None]
  - PELVIC PAIN [None]
